FAERS Safety Report 7631702 (Version 4)
Quarter: 2013Q4

REPORT INFORMATION
  Report Type: Spontaneous
  Country: US (occurrence: US)
  Receive Date: 20101018
  Receipt Date: 20131226
  Transmission Date: 20140711
  Serious: Yes (Hospitalization, Other)
  Sender: FDA-Public Use
  Company Number: US-BAYER-201036837NA

PATIENT
  Age: 30 Year
  Sex: Female
  Weight: 87.53 kg

DRUGS (2)
  1. YASMIN [Suspect]
     Indication: ORAL CONTRACEPTION
     Dosage: UNK UNK, UNK
     Route: 048
     Dates: start: 200509
  2. NAPROSYN [Concomitant]
     Dosage: UNK

REACTIONS (2)
  - Cholelithiasis [None]
  - Cholecystitis chronic [None]
